FAERS Safety Report 25706596 (Version 1)
Quarter: 2025Q3

REPORT INFORMATION
  Report Type: Spontaneous
  Country: US (occurrence: None)
  Receive Date: 20250820
  Receipt Date: 20250820
  Transmission Date: 20251020
  Serious: Yes (Hospitalization)
  Sender: FDA-CTU
  Company Number: None

PATIENT
  Sex: Female

DRUGS (11)
  1. LENALIDOMIDE [Suspect]
     Active Substance: LENALIDOMIDE
     Indication: Plasma cell myeloma
     Dosage: FREQUENCY : DAILY;?
     Route: 048
  2. AMLODIPINE [Concomitant]
     Active Substance: AMLODIPINE BESYLATE
  3. AMLODIPINE TAB5MG [Concomitant]
  4. ATORVASTATIN TAB 10MG [Concomitant]
  5. CARVEDILOL TAB 12.5MG [Concomitant]
  6. CARVEDILOL TAB 25MG [Concomitant]
  7. ELIOUIS TAB 2.5MG [Concomitant]
  8. FIASP FLEX I NJ TOUCH [Concomitant]
  9. FISH OIL CAP 1000MG [Concomitant]
  10. FUROSEMIDE [Concomitant]
     Active Substance: FUROSEMIDE
  11. HYDRALAZINE [Concomitant]
     Active Substance: HYDRALAZINE HYDROCHLORIDE

REACTIONS (1)
  - Hospitalisation [None]
